FAERS Safety Report 17656836 (Version 1)
Quarter: 2020Q2

REPORT INFORMATION
  Report Type: Spontaneous
  Country: US (occurrence: US)
  Receive Date: 20200410
  Receipt Date: 20200410
  Transmission Date: 20200713
  Serious: No
  Sender: FDA-Public Use
  Company Number: US-PERRIGO-18US016146

PATIENT
  Age: 24 Year
  Sex: Male

DRUGS (1)
  1. PSEUDOEPHEDRINE HYDROCHLORIDE. [Suspect]
     Active Substance: PSEUDOEPHEDRINE HYDROCHLORIDE
     Indication: INTENTIONAL OVERDOSE
     Dosage: TOTAL OF 2400 MG WITHIN 24 HOURS
     Route: 048
     Dates: start: 20181104, end: 20181105

REACTIONS (3)
  - Intentional overdose [Recovered/Resolved]
  - Gait disturbance [Unknown]
  - Feeling drunk [Unknown]

NARRATIVE: CASE EVENT DATE: 20081104
